FAERS Safety Report 10505021 (Version 1)
Quarter: 2014Q4

REPORT INFORMATION
  Report Type: Spontaneous
  Country: US (occurrence: US)
  Receive Date: 20141008
  Receipt Date: 20141008
  Transmission Date: 20150528
  Serious: Yes (Hospitalization, Other)
  Sender: FDA-Public Use
  Company Number: US-ABBVIE-14P-163-1289952-00

PATIENT
  Sex: Male

DRUGS (2)
  1. ANDROGEL [Suspect]
     Active Substance: TESTOSTERONE
     Indication: BLOOD TESTOSTERONE DECREASED
     Route: 065
     Dates: start: 201201, end: 201209
  2. TESTIM [Suspect]
     Active Substance: TESTOSTERONE
     Indication: BLOOD TESTOSTERONE DECREASED
     Route: 065
     Dates: start: 201201, end: 201209

REACTIONS (8)
  - Injury [Unknown]
  - Chest pain [Unknown]
  - Economic problem [Unknown]
  - Emotional distress [Unknown]
  - Impaired work ability [Unknown]
  - Atrial fibrillation [Unknown]
  - Social problem [Unknown]
  - Pain [Unknown]

NARRATIVE: CASE EVENT DATE: 20120926
